FAERS Safety Report 7131459-7 (Version None)
Quarter: 2010Q4

REPORT INFORMATION
  Report Type: 
  Country: None (occurrence: None)
  Receive Date: 20101201
  Receipt Date: 20101126
  Transmission Date: 20110411
  Serious: Yes (Other)
  Sender: FDA-Public Use
  Company Number: US-PFIZER INC-2010022390

PATIENT
  Sex: Male
  Weight: 72.6 kg

DRUGS (3)
  1. COLESTID [Suspect]
     Indication: BLOOD TRIGLYCERIDES INCREASED
     Dosage: 5 G, 1X/DAY
     Route: 048
     Dates: start: 20090101
  2. LOSARTAN [Concomitant]
     Indication: BLOOD PRESSURE ABNORMAL
     Dosage: 50 MG, 1X/DAY
     Route: 048
  3. HYDROCHLOROTHIAZIDE [Concomitant]
     Indication: BLOOD PRESSURE ABNORMAL
     Dosage: 25 MG, 1X/DAY
     Route: 048

REACTIONS (2)
  - CONSTIPATION [None]
  - HYPOTENSION [None]
